FAERS Safety Report 4426458-X (Version None)
Quarter: 2004Q3

REPORT INFORMATION
  Report Type: 
  Country: None (occurrence: None)
  Receive Date: 20040815
  Receipt Date: 20040712
  Transmission Date: 20050211
  Serious: Yes (Hospitalization)
  Sender: FDA-Public Use
  Company Number: US-MERCK-0407USA01315

PATIENT
  Age: 82 Year
  Sex: Female

DRUGS (16)
  1. PERSANTIN INJ [Concomitant]
     Route: 065
  2. DIVALPROEX SODIUM [Concomitant]
     Route: 065
  3. DIVALPROEX SODIUM [Concomitant]
     Route: 065
  4. DOCUSATE SODIUM [Concomitant]
     Indication: CONSTIPATION PROPHYLAXIS
     Route: 065
  5. FERROUS SULFATE [Concomitant]
     Indication: IRON DEFICIENCY ANAEMIA
     Route: 048
  6. LATANOPROST [Concomitant]
     Route: 065
  7. OLANZAPINE [Concomitant]
     Route: 048
  8. OLANZAPINE [Concomitant]
     Route: 065
  9. OLANZAPINE [Concomitant]
     Route: 065
  10. PROTONIX [Concomitant]
     Indication: PROPHYLAXIS
     Route: 065
  11. PAROXETINE [Concomitant]
     Route: 065
  12. PAROXETINE [Concomitant]
     Route: 065
  13. PILOCARPINE [Concomitant]
     Route: 065
  14. VIOXX [Suspect]
     Indication: OSTEOARTHRITIS
     Route: 048
  15. TRAZODONE HYDROCHLORIDE [Concomitant]
     Route: 065
  16. TRAZODONE HYDROCHLORIDE [Concomitant]
     Route: 065

REACTIONS (22)
  - AGGRESSION [None]
  - AGITATION [None]
  - BLOOD POTASSIUM DECREASED [None]
  - BRAIN SCAN ABNORMAL [None]
  - DELIRIUM [None]
  - DELUSION [None]
  - DEPRESSED LEVEL OF CONSCIOUSNESS [None]
  - DRUG INEFFECTIVE [None]
  - FEAR [None]
  - HAEMATOCRIT DECREASED [None]
  - HAEMOGLOBIN DECREASED [None]
  - HALLUCINATIONS, MIXED [None]
  - IMPAIRED SELF-CARE [None]
  - INSOMNIA [None]
  - IRON DEFICIENCY ANAEMIA [None]
  - LACUNAR INFARCTION [None]
  - MARKEDLY REDUCED DIETARY INTAKE [None]
  - MEMORY IMPAIRMENT [None]
  - MENTAL STATUS CHANGES [None]
  - PARANOIA [None]
  - SERUM FERRITIN INCREASED [None]
  - TREATMENT NONCOMPLIANCE [None]
